FAERS Safety Report 15379885 (Version 2)
Quarter: 2018Q4

REPORT INFORMATION
  Report Type: Report from Study
  Country: CA (occurrence: CA)
  Receive Date: 20180913
  Receipt Date: 20181217
  Transmission Date: 20190204
  Serious: Yes (Other)
  Sender: FDA-Public Use
  Company Number: CA-SA-2018SA104207

PATIENT
  Age: 26 Year
  Sex: Female

DRUGS (7)
  1. ALEMTUZUMAB [Suspect]
     Active Substance: ALEMTUZUMAB
     Indication: RELAPSING-REMITTING MULTIPLE SCLEROSIS
     Dosage: 12 MG,QD
     Route: 041
     Dates: start: 20180403, end: 20180405
  2. REACTINE [CETIRIZINE HYDROCHLORIDE] [Concomitant]
     Active Substance: CETIRIZINE HYDROCHLORIDE
     Indication: PREMEDICATION
     Dosage: 10 MG,UNK
     Route: 048
     Dates: start: 20180403, end: 20180405
  3. ACICLOVIR [Concomitant]
     Active Substance: ACYCLOVIR
     Indication: PREMEDICATION
     Dosage: 200 MG,BID
     Route: 048
     Dates: start: 20180403
  4. ZANTAC [Concomitant]
     Active Substance: RANITIDINE HYDROCHLORIDE
     Dosage: UNK UNK,UNK
     Route: 065
  5. RANITIDINE. [Concomitant]
     Active Substance: RANITIDINE
     Indication: PREMEDICATION
     Dosage: 150 MG,UNK
     Route: 048
     Dates: start: 20180403, end: 20180405
  6. TYLENOL [Concomitant]
     Active Substance: ACETAMINOPHEN
     Indication: PREMEDICATION
     Dosage: 975-1000MG, PRN
     Route: 048
     Dates: start: 20180403
  7. METHYLPREDNISOLONE. [Concomitant]
     Active Substance: METHYLPREDNISOLONE
     Indication: PREMEDICATION
     Dosage: 1 G,UNK
     Route: 042
     Dates: start: 20180403, end: 20180405

REACTIONS (24)
  - Haematocrit decreased [Recovered/Resolved]
  - White blood cell count decreased [Recovered/Resolved]
  - White blood cell count increased [Recovered/Resolved]
  - Hyperthyroidism [Not Recovered/Not Resolved]
  - Blood thyroid stimulating hormone decreased [Not Recovered/Not Resolved]
  - Gait disturbance [Recovering/Resolving]
  - Pain [Recovered/Resolved]
  - Lymphocyte count decreased [Recovered/Resolved]
  - Dyspnoea [Recovered/Resolved]
  - Eosinophil count increased [Recovered/Resolved]
  - Dizziness [Recovered/Resolved]
  - Neutrophil count increased [Recovered/Resolved]
  - Hyperhidrosis [Recovered/Resolved]
  - Haemoglobin decreased [Recovered/Resolved]
  - Abdominal discomfort [Not Recovered/Not Resolved]
  - Heart rate increased [Not Recovered/Not Resolved]
  - Multiple sclerosis relapse [Recovering/Resolving]
  - Headache [Recovering/Resolving]
  - Musculoskeletal discomfort [Not Recovered/Not Resolved]
  - Back pain [Recovering/Resolving]
  - Fatigue [Recovered/Resolved]
  - Nausea [Recovered/Resolved]
  - Chest discomfort [Recovered/Resolved]
  - Diarrhoea [Not Recovered/Not Resolved]

NARRATIVE: CASE EVENT DATE: 201804
